FAERS Safety Report 5444311-X (Version None)
Quarter: 2007Q3

REPORT INFORMATION
  Report Type: 
  Country: None (occurrence: None)
  Receive Date: 20070906
  Receipt Date: 20070904
  Transmission Date: 20080115
  Serious: Yes (Hospitalization, Other)
  Sender: FDA-Public Use
  Company Number: US-BRISTOL-MYERS SQUIBB COMPANY-13729215

PATIENT
  Age: 74 Year
  Sex: Male
  Weight: 86 kg

DRUGS (26)
  1. COUMADIN [Suspect]
     Indication: CARDIAC DISORDER
     Dosage: DOSING INTERRUPTED FOR PERIODS OF TIMES FROM AUG-2006 TO DEC-2006.
  2. LISINOPRIL [Suspect]
  3. FUROSEMIDE [Concomitant]
  4. METOPROLOL SUCCINATE [Concomitant]
     Route: 048
  5. FINASTERIDE [Concomitant]
     Route: 048
  6. SIMVASTATIN [Concomitant]
  7. TAMSULOSIN HCL [Concomitant]
  8. ASPIRIN [Concomitant]
     Route: 048
  9. POTASSIUM CHLORIDE [Concomitant]
  10. COMBIVENT [Concomitant]
     Dosage: 1 DOSAGE FORM-TWO PUFFS
     Route: 055
  11. ASMANEX TWISTHALER [Concomitant]
     Route: 055
  12. ZOCOR [Concomitant]
     Route: 048
  13. LASIX [Concomitant]
     Route: 048
  14. FLOMAX [Concomitant]
     Route: 048
  15. K-DUR 10 [Concomitant]
  16. SENNOSIDE [Concomitant]
     Route: 048
  17. DOCUSATE [Concomitant]
     Route: 048
  18. FORADIL [Concomitant]
     Route: 055
  19. FLUNISOLIDE [Concomitant]
     Route: 055
  20. GUAIFENESIN [Concomitant]
  21. WARFARIN SODIUM [Concomitant]
  22. COLACE [Concomitant]
  23. PULMICORT [Concomitant]
  24. ZANTAC 150 [Concomitant]
  25. ZOSYN [Concomitant]
  26. ATENOLOL [Concomitant]

REACTIONS (6)
  - ANGIOEDEMA [None]
  - BRONCHITIS [None]
  - DYSPEPSIA [None]
  - HAEMOPTYSIS [None]
  - RASH GENERALISED [None]
  - SYNCOPE [None]
